FAERS Safety Report 7119665-9 (Version None)
Quarter: 2010Q4

REPORT INFORMATION
  Report Type: 
  Country: None (occurrence: None)
  Receive Date: 20101115
  Receipt Date: 20101110
  Transmission Date: 20110411
  Serious: Yes (Life-Threatening)
  Sender: FDA-Public Use
  Company Number: 2010MA004438

PATIENT
  Age: 22 Year
  Sex: Female

DRUGS (4)
  1. VENLAFAXINE HYDROCHLORIDE [Suspect]
     Indication: DEPRESSION
     Dosage: 75 MG;BID;PO
     Route: 048
     Dates: start: 20100902, end: 20100903
  2. RIVOTRIL [Concomitant]
  3. YASMIN [Concomitant]
  4. PREV MEDS [Concomitant]

REACTIONS (8)
  - AMNESIA [None]
  - EPILEPSY [None]
  - FEMALE SEXUAL AROUSAL DISORDER [None]
  - HEADACHE [None]
  - MALAISE [None]
  - NAUSEA [None]
  - PARAESTHESIA [None]
  - VOMITING [None]
